FAERS Safety Report 7302414-9 (Version None)
Quarter: 2011Q1

REPORT INFORMATION
  Report Type: 
  Country: None (occurrence: None)
  Receive Date: 20110218
  Receipt Date: 20110216
  Transmission Date: 20110831
  Serious: No
  Sender: FDA-Public Use
  Company Number: US-PFIZER INC-2011034875

PATIENT
  Sex: Male
  Weight: 74.8 kg

DRUGS (3)
  1. ADVIL COLD AND SINUS [Suspect]
     Indication: NASOPHARYNGITIS
  2. ADVIL COLD AND SINUS [Suspect]
     Indication: NASAL CONGESTION
  3. ADVIL COLD AND SINUS [Suspect]
     Indication: INFLUENZA
     Dosage: UNK, 2X/DAY
     Route: 048
     Dates: start: 20110214, end: 20110215

REACTIONS (3)
  - NASAL CONGESTION [None]
  - DRUG INEFFECTIVE [None]
  - DYSPNOEA [None]
